FAERS Safety Report 5163622-9 (Version None)
Quarter: 2006Q4

REPORT INFORMATION
  Report Type: 
  Country: None (occurrence: None)
  Receive Date: 20061204
  Receipt Date: 20061120
  Transmission Date: 20070319
  Serious: Yes (Other)
  Sender: FDA-Public Use
  Company Number: PHFR2006GB03438

PATIENT

DRUGS (1)
  1. IMATINIB MESYLATE [Suspect]

REACTIONS (1)
  - LACRIMAL GLAND ENLARGEMENT [None]
